FAERS Safety Report 7960872-0 (Version None)
Quarter: 2011Q4

REPORT INFORMATION
  Report Type: 
  Country: None (occurrence: None)
  Receive Date: 20111121
  Receipt Date: 20110616
  Transmission Date: 20120403
  Serious: Yes (Other)
  Sender: FDA-Public Use
  Company Number: 2011-00657

PATIENT
  Age: 41 Year
  Sex: Male
  Weight: 99.7913 kg

DRUGS (10)
  1. LISINOPRIL AND HYDROCHLOROTHIAZIDE [Suspect]
     Indication: HYPERTENSION
     Dosage: 10MG/12.5MG (1 IN 1 D), PER ORAL
     Route: 048
     Dates: start: 20110609, end: 20110615
  2. TEMAZEPAM [Concomitant]
  3. HYDROCODONE BITARTRATE + ACETAMINOPHEN [Concomitant]
  4. VITAMIN D (CAPSULES) [Concomitant]
  5. OMEGA 3 FISH OIL (CAPSULES) [Concomitant]
  6. AMLODIPINE [Concomitant]
  7. OXYCODONE (OXYCONTIN) (TABLETS) [Concomitant]
  8. FEXOFENADINE (ALLEGRA) (TABLETS) [Concomitant]
  9. RED RICE YEAST (TABLETS) [Concomitant]
  10. MULTIVITAMINE (TABLETS) [Concomitant]

REACTIONS (1)
  - PHARYNGEAL OEDEMA [None]
